FAERS Safety Report 4428280-7 (Version None)
Quarter: 2004Q3

REPORT INFORMATION
  Report Type: 
  Country: None (occurrence: None)
  Receive Date: 20040816
  Receipt Date: 20040816
  Transmission Date: 20050211
  Serious: Yes (Other)
  Sender: FDA-Public Use
  Company Number: None

PATIENT
  Age: 23 Year
  Sex: Female
  Weight: 43.0917 kg

DRUGS (3)
  1. ZOSYN [Suspect]
     Dosage: 3.375GM Q 8H IV
     Route: 042
  2. ZOSYN [Suspect]
     Indication: PNEUMONIA
     Dosage: 3.375GM Q8H IV
     Route: 042
  3. TOBRAMYCIN [Concomitant]

REACTIONS (2)
  - HYPERHIDROSIS [None]
  - NAUSEA [None]
